FAERS Safety Report 23859736 (Version 1)
Quarter: 2024Q2

REPORT INFORMATION
  Report Type: Spontaneous
  Country: MX (occurrence: None)
  Receive Date: 20240515
  Receipt Date: 20240515
  Transmission Date: 20240716
  Serious: Yes (Other)
  Sender: FDA-Public Use
  Company Number: 2024A103703

PATIENT
  Age: 60 Year
  Sex: Female
  Weight: 87 kg

DRUGS (3)
  1. FASENRA [Suspect]
     Active Substance: BENRALIZUMAB
     Dosage: 1.0DF UNKNOWN
     Route: 058
  2. FASENRA [Suspect]
     Active Substance: BENRALIZUMAB
     Dosage: 1.0DF UNKNOWN
     Route: 058
     Dates: start: 202312, end: 202312
  3. FASENRA [Suspect]
     Active Substance: BENRALIZUMAB
     Dosage: 1.0DF UNKNOWN
     Route: 058
     Dates: start: 20240427, end: 20240427

REACTIONS (2)
  - Dacryocystitis [Recovered/Resolved]
  - Headache [Recovered/Resolved]

NARRATIVE: CASE EVENT DATE: 20240327
